FAERS Safety Report 20957368 (Version 1)
Quarter: 2022Q2

REPORT INFORMATION
  Report Type: Spontaneous
  Country: US (occurrence: None)
  Receive Date: 20220614
  Receipt Date: 20220614
  Transmission Date: 20220721
  Serious: Yes (Other)
  Sender: FDA-Public Use
  Company Number: None

PATIENT
  Age: 38 Year
  Sex: Female
  Weight: 90 kg

DRUGS (5)
  1. METHADONE [Suspect]
     Active Substance: METHADONE HYDROCHLORIDE
     Indication: Substance abuse
     Dosage: FREQUENCY : TWICE A DAY;?
     Route: 048
     Dates: start: 20220614, end: 20220614
  2. BUPRENORPHINE [Suspect]
     Active Substance: BUPRENORPHINE
     Indication: Substance abuse
     Dosage: FREQUENCY : TWICE A DAY;?
     Route: 048
     Dates: start: 20220311
  3. ONDANSETRON 4MG ODT [Concomitant]
     Dates: start: 20220511
  4. LOW DOSE ASPIRIN [Concomitant]
     Active Substance: ASPIRIN
     Dates: start: 20220511
  5. PRENTAL 27-1 [Concomitant]
     Dates: start: 20220511

REACTIONS (2)
  - Wrong product stored [None]
  - Product dispensing error [None]

NARRATIVE: CASE EVENT DATE: 20220614
